FAERS Safety Report 13361703 (Version 1)
Quarter: 2017Q1

REPORT INFORMATION
  Report Type: Spontaneous
  Country: JP (occurrence: JP)
  Receive Date: 20170323
  Receipt Date: 20170323
  Transmission Date: 20170429
  Serious: Yes (Hospitalization)
  Sender: FDA-Public Use
  Company Number: JP-ROCHE-1899789

PATIENT
  Age: 51 Year
  Sex: Male

DRUGS (5)
  1. VALIXA [Suspect]
     Active Substance: VALGANCICLOVIR
     Dosage: 900 TO 1800, ONCE OR TWICE DAILY
     Route: 048
     Dates: start: 201701
  2. VALIXA [Suspect]
     Active Substance: VALGANCICLOVIR
     Indication: CYTOMEGALOVIRUS CHORIORETINITIS
     Dosage: 900 TO 1800, ONCE OR TWICE DAILY
     Route: 048
     Dates: start: 201412, end: 201612
  3. VALIXA [Suspect]
     Active Substance: VALGANCICLOVIR
     Dosage: 900 TO 1800, ONCE OR TWICE DAILY
     Route: 048
     Dates: start: 201702
  4. DENOSINE (JAPAN) [Suspect]
     Active Substance: GANCICLOVIR
     Indication: CYTOMEGALOVIRUS CHORIORETINITIS
     Dosage: ONCE EVERY 7 TO 14 DAYS
     Route: 031
     Dates: start: 201607, end: 201612
  5. FOSCAVIR [Concomitant]
     Active Substance: FOSCARNET SODIUM
     Route: 031
     Dates: start: 201612

REACTIONS (4)
  - Vitreous opacities [Not Recovered/Not Resolved]
  - Off label use [Unknown]
  - Cataract [Not Recovered/Not Resolved]
  - Drug ineffective [Unknown]

NARRATIVE: CASE EVENT DATE: 201505
